FAERS Safety Report 8798908 (Version 3)
Quarter: 2013Q1

REPORT INFORMATION
  Report Type: Spontaneous
  Country: US (occurrence: US)
  Receive Date: 20120920
  Receipt Date: 20130212
  Transmission Date: 20140127
  Serious: Yes (Other)
  Sender: FDA-Public Use
  Company Number: US-PFIZER INC-2012228437

PATIENT
  Age: 58 Year
  Sex: Female
  Weight: 63.49 kg

DRUGS (7)
  1. ZOLOFT [Suspect]
     Indication: SLEEP DISORDER
     Dosage: 50 MG, DAILY
     Route: 048
     Dates: start: 1994, end: 2012
  2. ZOLOFT [Suspect]
     Indication: FATIGUE
     Dosage: 25MG DAILY
     Route: 048
     Dates: start: 2012, end: 2012
  3. ZOLOFT [Suspect]
     Indication: MENTAL DISORDER
     Dosage: 50 MG, UNK
     Route: 048
  4. PAXIL [Suspect]
     Indication: SLEEP DISORDER
     Dosage: UNK
  5. PAXIL [Suspect]
     Indication: FATIGUE
  6. FLURAZEPAM [Concomitant]
     Indication: SLEEP DISORDER
     Dosage: UNK
     Dates: start: 1989
  7. LORAZEPAM [Concomitant]
     Dosage: UNK

REACTIONS (20)
  - Heart valve incompetence [Unknown]
  - Off label use [Unknown]
  - Drug ineffective [Unknown]
  - Crying [Unknown]
  - Emotional disorder [Unknown]
  - Screaming [Unknown]
  - Abnormal behaviour [Unknown]
  - Anxiety [Unknown]
  - Panic reaction [Unknown]
  - Drug intolerance [Unknown]
  - Fibromyalgia [Unknown]
  - Lung disorder [Unknown]
  - Headache [Unknown]
  - Insomnia [Unknown]
  - Malaise [Unknown]
  - Nausea [Unknown]
  - Decreased appetite [Unknown]
  - Weight decreased [Unknown]
  - Feeling abnormal [Unknown]
  - Negative thoughts [Unknown]
